FAERS Safety Report 25119757 (Version 1)
Quarter: 2025Q1

REPORT INFORMATION
  Report Type: Spontaneous
  Country: US (occurrence: US)
  Receive Date: 20250325
  Receipt Date: 20250325
  Transmission Date: 20250409
  Serious: Yes (Other)
  Sender: ZO SKIN HEALTH
  Company Number: US-ZO SKIN HEALTH-2025ZOS00028

PATIENT

DRUGS (1)
  1. ZO SKIN HEALTH RETINOL PLUS ACNE COMPLEX [Suspect]
     Active Substance: SALICYLIC ACID

REACTIONS (1)
  - Urticaria [Unknown]
